FAERS Safety Report 4896511-5 (Version None)
Quarter: 2006Q1

REPORT INFORMATION
  Report Type: 
  Country: None (occurrence: None)
  Receive Date: 20060131
  Receipt Date: 20060124
  Transmission Date: 20060701
  Serious: Yes (Death, Hospitalization)
  Sender: FDA-Public Use
  Company Number: US-GLAXOSMITHKLINE-A0591323A

PATIENT
  Age: 40 Year
  Sex: Male

DRUGS (4)
  1. WELLBUTRIN XL [Suspect]
     Indication: DEPRESSION
     Dosage: 150MG PER DAY
     Route: 048
     Dates: start: 20040122
  2. PAXIL [Suspect]
     Indication: RESTLESS LEGS SYNDROME
     Route: 048
     Dates: start: 20030101
  3. PROZAC [Suspect]
     Indication: DEPRESSION
     Dosage: 20MG PER DAY
     Route: 048
     Dates: start: 20031201
  4. ZYPREXA [Suspect]
     Dosage: 15MG AT NIGHT
     Route: 048
     Dates: start: 20031201

REACTIONS (14)
  - ANXIETY [None]
  - COMPLETED SUICIDE [None]
  - DEPRESSION [None]
  - DISABILITY [None]
  - DRUG WITHDRAWAL SYNDROME [None]
  - FLAT AFFECT [None]
  - HYPERSOMNIA [None]
  - MANIA [None]
  - MENTAL STATUS CHANGES [None]
  - NAUSEA [None]
  - PAIN [None]
  - PSYCHOMOTOR HYPERACTIVITY [None]
  - SOMNOLENCE [None]
  - TENSION [None]
